FAERS Safety Report 8244644-8 (Version None)
Quarter: 2012Q1

REPORT INFORMATION
  Report Type: 
  Country: None (occurrence: None)
  Receive Date: 20120329
  Receipt Date: 20111201
  Transmission Date: 20120608
  Serious: No
  Sender: FDA-Public Use
  Company Number: US-MYLANLABS-2011S1024724

PATIENT
  Age: 40 Year
  Sex: Female

DRUGS (2)
  1. FENTANYL-100 [Suspect]
     Indication: PAIN IN EXTREMITY
     Dosage: CHANGED Q72H
     Route: 062
     Dates: start: 20080101
  2. MORPHINE SULFATE [Concomitant]
     Indication: PAIN IN EXTREMITY

REACTIONS (1)
  - DRUG SCREEN NEGATIVE [None]
